FAERS Safety Report 6377878-8 (Version None)
Quarter: 2009Q3

REPORT INFORMATION
  Report Type: 
  Country: None (occurrence: None)
  Receive Date: 20090925
  Receipt Date: 20090915
  Transmission Date: 20100115
  Serious: Yes (Hospitalization)
  Sender: FDA-Public Use
  Company Number: PHHY2009DE30540

PATIENT
  Sex: Male
  Weight: 64 kg

DRUGS (1)
  1. FORADIL [Suspect]
     Indication: ASTHMA
     Dosage: 24 UG/DAY
     Dates: start: 19970101, end: 20090401

REACTIONS (2)
  - CONCOMITANT DISEASE PROGRESSION [None]
  - RHINORRHOEA [None]
